FAERS Safety Report 8581488-1 (Version None)
Quarter: 2012Q2

REPORT INFORMATION
  Report Type: 
  Country: None (occurrence: None)
  Receive Date: 20120423
  Receipt Date: 20100608
  Transmission Date: 20120825
  Serious: Yes (Other)
  Sender: FDA-Public Use
  Company Number: PHHY2010US18549

PATIENT
  Age: 7 Year
  Sex: Male
  Weight: 31.2 kg

DRUGS (1)
  1. EXJADE [Suspect]
     Indication: SICKLE CELL ANAEMIA
     Dosage: 625 MG, QD, ORAL 2 AND 1/2 TABLETS DAILY, ORAL 2 TABLETS DAILY, ORAL
     Route: 048

REACTIONS (3)
  - LIVER DISORDER [None]
  - ALANINE AMINOTRANSFERASE INCREASED [None]
  - BLOOD BILIRUBIN INCREASED [None]
